FAERS Safety Report 4531586-4 (Version None)
Quarter: 2004Q4

REPORT INFORMATION
  Report Type: 
  Country: None (occurrence: None)
  Receive Date: 20041220
  Receipt Date: 19980610
  Transmission Date: 20050328
  Serious: Yes (Hospitalization)
  Sender: FDA-Public Use
  Company Number: F/98/01334/LES

PATIENT
  Age: 66 Year
  Sex: Female

DRUGS (3)
  1. TRINITRIN [Concomitant]
     Route: 062
     Dates: start: 19970601
  2. ACETYLSALICYLIC ACID [Concomitant]
     Dates: start: 19970601
  3. LOCHOL [Suspect]
     Indication: HYPERCHOLESTEROLAEMIA
     Dosage: 60 MG DAILY
     Route: 048
     Dates: start: 19970604, end: 19980726

REACTIONS (12)
  - ANTINUCLEAR ANTIBODY POSITIVE [None]
  - BIOPSY LUNG [None]
  - BLOOD CARBON MONOXIDE DECREASED [None]
  - CHEST X-RAY ABNORMAL [None]
  - CRACKLES LUNG [None]
  - CRYPTOGENIC ORGANIZING PNEUMONIA [None]
  - DYSPNOEA [None]
  - HYPOXIA [None]
  - INTERSTITIAL LUNG DISEASE [None]
  - LUNG CONSOLIDATION [None]
  - PULMONARY FUNCTION TEST ABNORMAL [None]
  - RESPIRATORY FAILURE [None]
